FAERS Safety Report 17195136 (Version 3)
Quarter: 2020Q1

REPORT INFORMATION
  Report Type: Spontaneous
  Country: AU (occurrence: AU)
  Receive Date: 20191224
  Receipt Date: 20200224
  Transmission Date: 20200409
  Serious: Yes (Hospitalization, Other)
  Sender: FDA-Public Use
  Company Number: AU-BRISTOL-MYERS SQUIBB COMPANY-BMS-2019-119400

PATIENT
  Sex: Female

DRUGS (4)
  1. IVIGLOB EX [Concomitant]
     Active Substance: HUMAN IMMUNOGLOBULIN G
     Indication: IMMUNE SYSTEM DISORDER
     Dosage: 25 GRAM, QMO
     Route: 042
     Dates: start: 2006
  2. VALGANCICLOVIR. [Concomitant]
     Active Substance: VALGANCICLOVIR
     Indication: IMMUNE SYSTEM DISORDER
     Dosage: 900 MILLIGRAM, BID
     Route: 065
  3. VEDOLIZUMAB [Suspect]
     Active Substance: VEDOLIZUMAB
     Indication: CTLA4 DEFICIENCY
     Dosage: 300 MILLIGRAM, Q8WK
     Route: 042
  4. ABATACEPT [Suspect]
     Active Substance: ABATACEPT
     Indication: CTLA4 DEFICIENCY
     Dosage: 2 GRAM, Q4WK
     Route: 042

REACTIONS (4)
  - Disease progression [Unknown]
  - Adenocarcinoma gastric [Unknown]
  - Intentional product use issue [Unknown]
  - Gastric cancer [Unknown]

NARRATIVE: CASE EVENT DATE: 2019
